FAERS Safety Report 8422278-X (Version None)
Quarter: 2012Q2

REPORT INFORMATION
  Report Type: 
  Country: None (occurrence: None)
  Receive Date: 20120608
  Receipt Date: 20120529
  Transmission Date: 20120825
  Serious: Yes (Death, Life-Threatening, Other)
  Sender: FDA-Public Use
  Company Number: JP-ROCHE-1033677

PATIENT
  Sex: Male
  Weight: 57 kg

DRUGS (27)
  1. XELODA [Suspect]
     Indication: RECTAL CANCER RECURRENT
     Dosage: IT IS ONE ADMINISTERING WEEKLY HOLIDAY MEDICINE FOR TWO WEEKS.
     Route: 048
     Dates: start: 20110927, end: 20111101
  2. WARFARIN SODIUM [Suspect]
     Indication: DEEP VEIN THROMBOSIS
     Dosage: DOSAGE IS UNCERTAIN.
     Route: 048
     Dates: start: 20110801
  3. LYRICA [Concomitant]
     Route: 048
  4. MAGMITT [Concomitant]
     Route: 048
     Dates: start: 20110930
  5. MIDAZOLAM HCL [Concomitant]
     Route: 041
     Dates: start: 20120116, end: 20120118
  6. WARFARIN SODIUM [Suspect]
     Route: 048
  7. OXYCONTIN [Suspect]
     Indication: PRODUCT USED FOR UNKNOWN INDICATION
     Route: 048
     Dates: start: 20110929
  8. LOXOPROFEN [Concomitant]
     Route: 048
     Dates: start: 20110929
  9. DIOVAN [Concomitant]
     Route: 048
     Dates: end: 20110928
  10. MAGMITT [Concomitant]
     Route: 048
     Dates: start: 20111208
  11. PRIMPERAN (BELGIUM) [Concomitant]
     Indication: NAUSEA
     Route: 048
     Dates: start: 20111001
  12. GRANISETRON [Concomitant]
     Route: 041
     Dates: start: 20110927
  13. DIOVAN [Concomitant]
     Route: 048
     Dates: start: 20110930
  14. FAMOTIDINE [Concomitant]
     Route: 041
     Dates: start: 20120114
  15. MUCOSTA [Concomitant]
     Route: 048
     Dates: start: 20110929
  16. PROCHLORPERAZINE [Concomitant]
     Route: 048
     Dates: start: 20110930
  17. MORPHINE [Concomitant]
     Indication: PAIN
     Route: 048
     Dates: start: 20110929
  18. DEXAMETHASONE SODIUM PHOSPHATE [Concomitant]
     Route: 041
     Dates: start: 20110927
  19. KAYTWO N [Concomitant]
     Route: 041
     Dates: start: 20120114, end: 20120114
  20. HALOPERIDOL [Concomitant]
     Indication: RESTLESSNESS
     Route: 041
     Dates: start: 20120116, end: 20120116
  21. LANSOPRAZOLE [Concomitant]
     Route: 048
     Dates: start: 20120113
  22. PYDOXAL [Concomitant]
     Route: 048
     Dates: start: 20110926
  23. AMLODIPINE [Concomitant]
     Route: 048
  24. WARFARIN SODIUM [Suspect]
     Route: 048
     Dates: start: 20110928
  25. OXALIPLATIN [Concomitant]
     Indication: RECTAL CANCER RECURRENT
     Route: 041
  26. LAXOBERON [Concomitant]
     Indication: CONSTIPATION
     Dosage: 10-15 DROPS ONCE
     Route: 048
     Dates: start: 20111001
  27. ATARAX [Concomitant]
     Indication: RESTLESSNESS
     Route: 030
     Dates: start: 20120115

REACTIONS (4)
  - PULMONARY ALVEOLAR HAEMORRHAGE [None]
  - PNEUMONIA BACTERIAL [None]
  - ASPHYXIA [None]
  - INTERSTITIAL LUNG DISEASE [None]
